FAERS Safety Report 15238895 (Version 1)
Quarter: 2018Q3

REPORT INFORMATION
  Report Type: Spontaneous
  Country: GB (occurrence: DE)
  Receive Date: 20180803
  Receipt Date: 20180803
  Transmission Date: 20181010
  Serious: Yes (Hospitalization, Other)
  Sender: FDA-Public Use
  Company Number: DE-FRESENIUS KABI-FK201808339

PATIENT
  Age: 63 Year
  Sex: Male

DRUGS (1)
  1. CARBOPLATIN (MANUFACTURER UNKNOWN) [Suspect]
     Active Substance: CARBOPLATIN
     Indication: NASOPHARYNGEAL CANCER
     Route: 065
     Dates: start: 201801

REACTIONS (7)
  - Candida infection [Unknown]
  - Pemphigoid [Unknown]
  - Cardiovascular disorder [Unknown]
  - Hyponatraemia [Recovering/Resolving]
  - Skin lesion [Recovered/Resolved]
  - Streptococcal infection [Unknown]
  - Pyrexia [Unknown]

NARRATIVE: CASE EVENT DATE: 201804
